FAERS Safety Report 7117895-3 (Version None)
Quarter: 2010Q4

REPORT INFORMATION
  Report Type: 
  Country: None (occurrence: None)
  Receive Date: 20101123
  Receipt Date: 20101108
  Transmission Date: 20110411
  Serious: No
  Sender: FDA-Public Use
  Company Number: US-JNJFOC-20101103530

PATIENT
  Sex: Male
  Weight: 52.16 kg

DRUGS (4)
  1. SANDOZ FENTANYL TRANSDERMAL SYSTEM [Suspect]
     Indication: ARTHRITIS
     Route: 062
  2. SANDOZ FENTANYL TRANSDERMAL SYSTEM [Suspect]
     Indication: MUSCULOSKELETAL PAIN
     Route: 062
  3. FENTANYL-100 [Suspect]
     Indication: ARTHRITIS
     Route: 062
  4. FENTANYL-100 [Suspect]
     Indication: MUSCULOSKELETAL PAIN
     Route: 062

REACTIONS (4)
  - ARTHRALGIA [None]
  - DISCOMFORT [None]
  - DRUG INEFFECTIVE [None]
  - INAPPROPRIATE SCHEDULE OF DRUG ADMINISTRATION [None]
